FAERS Safety Report 21566802 (Version 1)
Quarter: 2022Q4

REPORT INFORMATION
  Report Type: Spontaneous
  Country: CN (occurrence: None)
  Receive Date: 20221108
  Receipt Date: 20221108
  Transmission Date: 20230112
  Serious: Yes (Hospitalization, Other)
  Sender: FDA-Public Use
  Company Number: CN-Merck Healthcare KGaA-9362567

PATIENT
  Age: 31 Year
  Sex: Female
  Weight: 53 kg

DRUGS (9)
  1. GONAL-F [Suspect]
     Active Substance: FOLLITROPIN
     Indication: Infertility female
     Route: 058
     Dates: start: 20220905, end: 20220905
  2. LUVERIS [Suspect]
     Active Substance: LUTROPIN ALFA
     Indication: Infertility female
     Route: 058
     Dates: start: 20220909, end: 20220913
  3. OVIDREL [Suspect]
     Active Substance: CHORIOGONADOTROPIN ALFA
     Indication: Infertility female
     Route: 058
     Dates: start: 20220913, end: 20220913
  4. CRINONE [Suspect]
     Active Substance: PROGESTERONE
     Indication: In vitro fertilisation
     Route: 067
     Dates: start: 20220915, end: 20220915
  5. SOMATROPIN [Suspect]
     Active Substance: SOMATROPIN
     Indication: Infertility female
     Route: 058
     Dates: start: 20220829, end: 20220913
  6. MENOTROPINS [Suspect]
     Active Substance: MENOTROPINS
     Indication: Infertility female
     Route: 030
     Dates: start: 20220902, end: 20220902
  7. MENOPUR [Suspect]
     Active Substance: FOLLITROPIN\LUTEINIZING HORMONE
     Indication: Infertility female
     Route: 058
     Dates: start: 20220911, end: 20220912
  8. DUPHASTON [Suspect]
     Active Substance: DYDROGESTERONE
     Indication: In vitro fertilisation
     Route: 048
     Dates: start: 20220915, end: 20220915
  9. FOLLITROPIN ALFA [Suspect]
     Active Substance: FOLLITROPIN ALFA
     Indication: Infertility female
     Route: 058
     Dates: start: 20220913, end: 20220913

REACTIONS (1)
  - Ovarian hyperstimulation syndrome [Unknown]

NARRATIVE: CASE EVENT DATE: 20220916
